FAERS Safety Report 4529576-0 (Version None)
Quarter: 2004Q4

REPORT INFORMATION
  Report Type: 
  Country: None (occurrence: None)
  Receive Date: 20041216
  Receipt Date: 20041210
  Transmission Date: 20050328
  Serious: Yes (Disabling)
  Sender: FDA-Public Use
  Company Number: US-MERCK-0412USA01314

PATIENT
  Age: 43 Year
  Sex: Male

DRUGS (3)
  1. VIOXX [Suspect]
     Indication: NECK INJURY
     Route: 048
     Dates: end: 20041001
  2. TYLENOL (CAPLET) [Concomitant]
     Route: 065
  3. WELLBUTRIN SR [Concomitant]
     Route: 065

REACTIONS (1)
  - MYOCARDIAL INFARCTION [None]
